FAERS Safety Report 20553472 (Version 3)
Quarter: 2022Q4

REPORT INFORMATION
  Report Type: Spontaneous
  Country: JP (occurrence: JP)
  Receive Date: 20220304
  Receipt Date: 20221020
  Transmission Date: 20230113
  Serious: Yes (Other)
  Sender: FDA-Public Use
  Company Number: JP-UNITED THERAPEUTICS-UNT-2021-023171

PATIENT
  Age: 21 Year
  Sex: Female
  Weight: 44 kg

DRUGS (21)
  1. UNITUXIN [Suspect]
     Active Substance: DINUTUXIMAB
     Indication: Neuroblastoma recurrent
     Dosage: 17.5 MG/M2, CYCLICAL (CYCLE 1)
     Route: 041
     Dates: start: 20211104, end: 20211107
  2. UNITUXIN [Suspect]
     Active Substance: DINUTUXIMAB
     Dosage: 17.5 MG/M2, CYCLICAL (CYCLE 2)
     Route: 041
     Dates: start: 20211206
  3. UNITUXIN [Suspect]
     Active Substance: DINUTUXIMAB
     Dosage: 17.5 MG/M2, CYCLICAL (CYCLE 3)
     Route: 041
     Dates: start: 20220102
  4. UNITUXIN [Suspect]
     Active Substance: DINUTUXIMAB
     Dosage: 17.5 MG/M2, CYCLICAL (CYCLE 4)
     Route: 041
  5. UNITUXIN [Suspect]
     Active Substance: DINUTUXIMAB
     Dosage: 17.5 MG/M2, CYCLICAL (CYCLE 5)
     Route: 041
  6. MORPHINE HYDROCHLORIDE [Suspect]
     Active Substance: MORPHINE HYDROCHLORIDE
     Indication: Back pain
     Dosage: UNK
     Route: 042
     Dates: start: 202111
  7. MORPHINE HYDROCHLORIDE [Suspect]
     Active Substance: MORPHINE HYDROCHLORIDE
     Dosage: 7.2 MG/DAY
     Route: 065
  8. MORPHINE HYDROCHLORIDE [Suspect]
     Active Substance: MORPHINE HYDROCHLORIDE
     Dosage: 30 MG/DAY
     Route: 065
  9. MORPHINE HYDROCHLORIDE [Suspect]
     Active Substance: MORPHINE HYDROCHLORIDE
     Dosage: 7.2 MG/DAY
     Route: 065
  10. MORPHINE HYDROCHLORIDE [Suspect]
     Active Substance: MORPHINE HYDROCHLORIDE
     Dosage: 30 MG/DAY
     Route: 065
  11. HYDROXYZINE [Concomitant]
     Active Substance: HYDROXYZINE HYDROCHLORIDE
     Indication: Product used for unknown indication
     Dosage: 2.4 MILLIGRAM/KG/DAY
     Route: 065
  12. HYDROXYZINE [Concomitant]
     Active Substance: HYDROXYZINE HYDROCHLORIDE
     Dosage: 30 MG, Q6H (0.6 MG/KG)
     Route: 065
  13. TECELEUKIN [Concomitant]
     Active Substance: TECELEUKIN
     Indication: Neuroblastoma recurrent
     Dosage: UNK, CYCLE 2
     Route: 065
     Dates: start: 20211206
  14. TECELEUKIN [Concomitant]
     Active Substance: TECELEUKIN
     Dosage: UNK, (CYCLE 4)
     Route: 065
     Dates: start: 20220201
  15. TECELEUKIN [Concomitant]
     Active Substance: TECELEUKIN
     Dosage: 750000 IU/SQ.METER/DAY ((1,050,000 U)
     Route: 058
  16. TECELEUKIN [Concomitant]
     Active Substance: TECELEUKIN
     Dosage: 1000000 IU/SQ.METER/DAY (1,400,000 U)
     Route: 058
  17. TECELEUKIN [Concomitant]
     Active Substance: TECELEUKIN
     Dosage: 750000 IU/SQ.METER/DAY (1,050,000 U)
     Route: 058
  18. TECELEUKIN [Concomitant]
     Active Substance: TECELEUKIN
     Dosage: 1000000 IU/SQ.METER/DAY (1,400,000 U)
     Route: 058
  19. FILGRASTIM [Concomitant]
     Active Substance: FILGRASTIM
     Indication: Neuroblastoma recurrent
     Dosage: 5 MICROGRAM/KG/DAY (250 ?G)
     Route: 065
  20. ACETAMINOPHEN [Concomitant]
     Active Substance: ACETAMINOPHEN
     Indication: Supportive care
     Dosage: UNK
     Route: 065
     Dates: start: 20211104
  21. ACETAMINOPHEN [Concomitant]
     Active Substance: ACETAMINOPHEN
     Indication: Pyrexia
     Dosage: 40 MILLIGRAM/KILOGRAM/DAY
     Route: 065

REACTIONS (34)
  - Metastasis [Recovering/Resolving]
  - Capillary leak syndrome [Unknown]
  - Capillary leak syndrome [Unknown]
  - Back pain [Recovered/Resolved]
  - Back pain [Recovered/Resolved]
  - Hypoxia [Recovered/Resolved]
  - Somnolence [Recovered/Resolved]
  - Constipation [Recovered/Resolved]
  - Vomiting [Recovered/Resolved]
  - Pyrexia [Recovered/Resolved]
  - Hypotension [Recovered/Resolved]
  - C-reactive protein increased [Recovering/Resolving]
  - Pyrexia [Unknown]
  - Hypotension [Unknown]
  - C-reactive protein increased [Recovered/Resolved]
  - Abdominal pain [Recovered/Resolved]
  - Malaise [Recovered/Resolved]
  - Hypotension [Unknown]
  - C-reactive protein increased [Recovered/Resolved]
  - Pyrexia [Recovered/Resolved]
  - Nausea [Recovered/Resolved]
  - Headache [Recovered/Resolved]
  - Blood albumin decreased [Recovered/Resolved]
  - Neurone-specific enolase increased [Unknown]
  - Headache [Unknown]
  - Abdominal pain [Unknown]
  - Hypotension [Recovered/Resolved]
  - Somnolence [Unknown]
  - Hypotension [Recovered/Resolved]
  - Pyrexia [Recovered/Resolved]
  - Headache [Unknown]
  - Nausea [Unknown]
  - Arthralgia [Unknown]
  - Chest pain [Unknown]

NARRATIVE: CASE EVENT DATE: 20211104
